FAERS Safety Report 18966029 (Version 1)
Quarter: 2021Q1

REPORT INFORMATION
  Report Type: Report from Study
  Country: US (occurrence: US)
  Receive Date: 20210303
  Receipt Date: 20210303
  Transmission Date: 20210420
  Serious: Yes (Other)
  Sender: FDA-Public Use
  Company Number: US-ASTRAZENECA-2020SF55224

PATIENT
  Sex: Male

DRUGS (3)
  1. CALQUENCE [Suspect]
     Active Substance: ACALABRUTINIB
     Indication: CHRONIC LYMPHOCYTIC LEUKAEMIA
     Route: 048
  2. VITAMIN D3 [Concomitant]
     Active Substance: CHOLECALCIFEROL
     Indication: IMMUNE SYSTEM DISORDER
  3. METOPROLOL. [Suspect]
     Active Substance: METOPROLOL
     Route: 048

REACTIONS (11)
  - Heart rate increased [Unknown]
  - Myocardial infarction [Unknown]
  - Immune system disorder [Unknown]
  - Hypertension [Unknown]
  - Platelet count decreased [Recovering/Resolving]
  - Platelet count increased [Unknown]
  - White blood cell count decreased [Unknown]
  - Skin cancer [Recovering/Resolving]
  - Feeling abnormal [Unknown]
  - Product dose omission in error [Unknown]
  - Cardiac valve disease [Unknown]
